FAERS Safety Report 4945460-2 (Version None)
Quarter: 2006Q1

REPORT INFORMATION
  Report Type: 
  Country: None (occurrence: None)
  Receive Date: 20060316
  Receipt Date: 20060213
  Transmission Date: 20060701
  Serious: Yes (Hospitalization)
  Sender: FDA-Public Use
  Company Number: JP-JPN-A200600570

PATIENT
  Age: 69 Year
  Sex: Female
  Weight: 53 kg

DRUGS (9)
  1. ZOVIRAX [Suspect]
     Indication: HERPES ZOSTER
     Route: 042
     Dates: start: 20060201, end: 20060203
  2. VALTREX [Suspect]
     Indication: HERPES ZOSTER
     Dosage: 1000MG THREE TIMES PER DAY
     Route: 048
     Dates: start: 20060204, end: 20060206
  3. JUVELA NICOTINATE [Concomitant]
     Route: 048
  4. ELASZYM [Concomitant]
     Route: 048
  5. EPADEL [Concomitant]
     Route: 048
  6. PANALDINE [Concomitant]
     Route: 048
  7. LASIX [Concomitant]
     Route: 048
  8. ALMARL [Concomitant]
     Route: 048
  9. LOXONIN [Concomitant]
     Route: 048

REACTIONS (4)
  - BLOOD CREATININE INCREASED [None]
  - MALAISE [None]
  - OEDEMA [None]
  - RENAL FAILURE ACUTE [None]
